FAERS Safety Report 4842625-5 (Version None)
Quarter: 2005Q4

REPORT INFORMATION
  Report Type: 
  Country: None (occurrence: None)
  Receive Date: 20051201
  Receipt Date: 20051128
  Transmission Date: 20060501
  Serious: Yes (Hospitalization)
  Sender: FDA-Public Use
  Company Number: JP-JPN-A20052904

PATIENT
  Age: 31 Year
  Sex: Male

DRUGS (7)
  1. PAXIL [Suspect]
     Indication: DEPRESSION
     Route: 048
     Dates: start: 20050624, end: 20051116
  2. SOLANAX [Concomitant]
     Dosage: .4MG TWICE PER DAY
     Route: 048
  3. CONTOMIN [Concomitant]
     Dosage: 25MG PER DAY
     Route: 065
  4. NITRAZEPAM [Concomitant]
     Dosage: 10MG PER DAY
     Route: 048
  5. EURODIN [Concomitant]
     Dosage: 2U PER DAY
     Route: 048
  6. MAGNESIUM OXIDE [Concomitant]
     Dosage: 1G PER DAY
     Route: 065
  7. SENNOSIDE [Concomitant]
     Dosage: 2U PER DAY
     Route: 048

REACTIONS (1)
  - DRUG WITHDRAWAL SYNDROME [None]
